FAERS Safety Report 4591085-0 (Version None)
Quarter: 2005Q1

REPORT INFORMATION
  Report Type: 
  Country: None (occurrence: None)
  Receive Date: 20050225
  Receipt Date: 20041130
  Transmission Date: 20050727
  Serious: Yes (Hospitalization)
  Sender: FDA-Public Use
  Company Number: 200414493FR

PATIENT
  Age: 50 Year
  Sex: Female

DRUGS (6)
  1. RIFATER [Suspect]
     Route: 048
     Dates: start: 20040915
  2. TERCIAN [Suspect]
     Route: 048
     Dates: end: 20041020
  3. MEPRONIZINE [Suspect]
     Route: 048
     Dates: end: 20041020
  4. MODECATE [Suspect]
     Dates: start: 20041012, end: 20041012
  5. TEMESTA [Suspect]
     Route: 048
     Dates: end: 20041020
  6. HALDOL [Suspect]
     Route: 048
     Dates: end: 20041020

REACTIONS (1)
  - NEUROLEPTIC MALIGNANT SYNDROME [None]
